FAERS Safety Report 8615689-0 (Version None)
Quarter: 2012Q3

REPORT INFORMATION
  Report Type: 
  Country: None (occurrence: None)
  Receive Date: 20120823
  Receipt Date: 20120813
  Transmission Date: 20120928
  Serious: Yes (Hospitalization)
  Sender: FDA-Public Use
  Company Number: US-ELI_LILLY_AND_COMPANY-US201205009735

PATIENT
  Sex: Female
  Weight: 53.515 kg

DRUGS (6)
  1. NEXIUM [Concomitant]
  2. METHADONE HYDROCHLORIDE [Concomitant]
  3. ALLEGRA [Concomitant]
  4. FORTEO [Suspect]
     Dosage: UNK
     Route: 065
  5. DILAUDID [Concomitant]
  6. VESICARE [Concomitant]

REACTIONS (1)
  - MULTIPLE SCLEROSIS RELAPSE [None]
